FAERS Safety Report 5129487-6 (Version None)
Quarter: 2006Q4

REPORT INFORMATION
  Report Type: 
  Country: None (occurrence: None)
  Receive Date: 20061012
  Receipt Date: 20061003
  Transmission Date: 20070319
  Serious: Yes (Other)
  Sender: FDA-Public Use
  Company Number: 2006103823

PATIENT
  Age: 16 Year
  Sex: Male
  Weight: 140.6151 kg

DRUGS (3)
  1. ZOLOFT [Suspect]
     Indication: DEPRESSION
     Dosage: (1 D)
     Dates: start: 20050301
  2. SEROQUEL [Concomitant]
  3. ABILIFY [Concomitant]

REACTIONS (5)
  - ALANINE AMINOTRANSFERASE INCREASED [None]
  - ASPARTATE AMINOTRANSFERASE INCREASED [None]
  - DEPRESSION [None]
  - HEPATIC ENZYME INCREASED [None]
  - HYPOMANIA [None]
